FAERS Safety Report 25877098 (Version 2)
Quarter: 2025Q4

REPORT INFORMATION
  Report Type: Spontaneous
  Country: US (occurrence: US)
  Receive Date: 20251003
  Receipt Date: 20251010
  Transmission Date: 20260117
  Serious: Yes (Other)
  Sender: AUROBINDO
  Company Number: US-MLMSERVICE-20250917-PI644424-00218-1

PATIENT
  Age: 60 Year
  Sex: Male

DRUGS (4)
  1. METHYLPREDNISOLONE [Suspect]
     Active Substance: METHYLPREDNISOLONE
     Indication: Pulmonary sarcoidosis
     Route: 065
  2. METHOTREXATE [Suspect]
     Active Substance: METHOTREXATE
     Indication: Pulmonary sarcoidosis
     Dosage: 15 MILLIGRAM
     Route: 065
  3. PREDNISONE [Suspect]
     Active Substance: PREDNISONE
     Indication: Pulmonary sarcoidosis
     Dosage: 40 MILLIGRAM (TITRATED UP TO 40 MG OF PREDNISONE DAILY)
     Route: 065
  4. FOLIC ACID [Concomitant]
     Active Substance: FOLIC ACID
     Indication: Pulmonary sarcoidosis
     Dosage: UNK
     Route: 065

REACTIONS (2)
  - Mycobacterium marinum infection [Unknown]
  - Insomnia [Unknown]
